FAERS Safety Report 16170904 (Version 1)
Quarter: 2019Q2

REPORT INFORMATION
  Report Type: Report from Study
  Country: BG (occurrence: BG)
  Receive Date: 20190408
  Receipt Date: 20190408
  Transmission Date: 20190711
  Serious: Yes (Hospitalization, Other)
  Sender: FDA-Public Use
  Company Number: BG-SA-2019SA095464

PATIENT
  Age: 69 Year
  Sex: Male

DRUGS (1)
  1. CABAZITAXEL [Suspect]
     Active Substance: CABAZITAXEL
     Dosage: UNK UNK, UNK
     Dates: start: 20190130

REACTIONS (3)
  - Fall [Unknown]
  - Head injury [Unknown]
  - Coma [Unknown]
